FAERS Safety Report 17491191 (Version 5)
Quarter: 2022Q4

REPORT INFORMATION
  Report Type: Spontaneous
  Country: US (occurrence: US)
  Receive Date: 20200304
  Receipt Date: 20221101
  Transmission Date: 20230112
  Serious: Yes (Hospitalization, Other)
  Sender: FDA-Public Use
  Company Number: US-MLMSERVICE-20200214-2172145-1

PATIENT
  Age: 55 Year
  Sex: Female

DRUGS (2)
  1. FAMOTIDINE [Suspect]
     Active Substance: FAMOTIDINE
     Indication: Gastrooesophageal reflux disease
     Dosage: 20 MILLIGRAM, TWO TIMES A DAY
     Route: 065
  2. FAMOTIDINE [Suspect]
     Active Substance: FAMOTIDINE
     Dosage: 1 DOSAGE FORM, TWO TIMES A DAY
     Route: 065

REACTIONS (4)
  - Hypocalcaemia [Recovered/Resolved]
  - Hypoparathyroidism [Recovered/Resolved]
  - Hypomagnesaemia [Recovered/Resolved]
  - Toxicity to various agents [Recovered/Resolved]
